FAERS Safety Report 16085395 (Version 4)
Quarter: 2019Q2

REPORT INFORMATION
  Report Type: Report from Study
  Country: US (occurrence: US)
  Receive Date: 20190318
  Receipt Date: 20190520
  Transmission Date: 20190711
  Serious: Yes (Hospitalization)
  Sender: FDA-Public Use
  Company Number: US-TESAROUBC-2019-TSO01103-US

PATIENT
  Age: 70 Year
  Sex: Female
  Weight: 52.2 kg

DRUGS (6)
  1. ZEJULA [Suspect]
     Active Substance: NIRAPARIB
     Indication: OVARIAN CANCER
     Dosage: 300 MG, QAM WITH FOOD
     Route: 048
     Dates: start: 20190225
  2. ZEJULA [Suspect]
     Active Substance: NIRAPARIB
     Dosage: 100 MG, QAM
     Route: 048
     Dates: start: 20190312
  3. LYRICA [Concomitant]
     Active Substance: PREGABALIN
     Indication: PRODUCT USED FOR UNKNOWN INDICATION
  4. CELEXA [Concomitant]
     Active Substance: CITALOPRAM HYDROBROMIDE
     Indication: PRODUCT USED FOR UNKNOWN INDICATION
  5. VITAMIN B12 [Concomitant]
     Active Substance: CYANOCOBALAMIN
     Indication: PRODUCT USED FOR UNKNOWN INDICATION
  6. LEVOTHYROXINE. [Concomitant]
     Active Substance: LEVOTHYROXINE
     Indication: PRODUCT USED FOR UNKNOWN INDICATION

REACTIONS (17)
  - Dizziness [Not Recovered/Not Resolved]
  - Liver function test abnormal [Unknown]
  - Asthenia [Unknown]
  - Blood potassium increased [Recovered/Resolved]
  - Blood creatinine increased [Recovered/Resolved]
  - Headache [Not Recovered/Not Resolved]
  - Full blood count decreased [Unknown]
  - Gallbladder disorder [Unknown]
  - Ill-defined disorder [Unknown]
  - Dyspnoea [Unknown]
  - Loss of personal independence in daily activities [Unknown]
  - Balance disorder [Not Recovered/Not Resolved]
  - Vomiting [Not Recovered/Not Resolved]
  - Gait disturbance [Not Recovered/Not Resolved]
  - Malaise [Unknown]
  - Nausea [Recovered/Resolved]
  - Renal disorder [Unknown]

NARRATIVE: CASE EVENT DATE: 201902
